FAERS Safety Report 6140063-9 (Version None)
Quarter: 2009Q2

REPORT INFORMATION
  Report Type: 
  Country: None (occurrence: None)
  Receive Date: 20090401
  Receipt Date: 20090330
  Transmission Date: 20091009
  Serious: Yes (Death)
  Sender: FDA-Public Use
  Company Number: PHHY2009GB11799

PATIENT
  Age: 50 Year
  Sex: Female

DRUGS (2)
  1. CLOZAPINE [Suspect]
     Dosage: UNK
     Dates: start: 20050721, end: 20081229
  2. ZAPONEX [Suspect]
     Dosage: 325 MG
     Dates: start: 20081230

REACTIONS (2)
  - DEATH [None]
  - LUNG DISORDER [None]
